FAERS Safety Report 9080702 (Version 1)
Quarter: 2013Q1

REPORT INFORMATION
  Report Type: Report from Study
  Country: US (occurrence: US)
  Receive Date: 20130130
  Receipt Date: 20130130
  Transmission Date: 20140127
  Serious: No
  Sender: FDA-Public Use
  Company Number: US-ABBOTT-12P-163-0965134-00

PATIENT
  Sex: Female
  Weight: 108.96 kg

DRUGS (9)
  1. HUMIRA 40 MG/0.8 ML PEN [Suspect]
     Indication: PSORIATIC ARTHROPATHY
     Route: 058
     Dates: start: 201109
  2. HUMIRA 40 MG/0.8 ML PEN [Suspect]
     Indication: PSORIASIS
  3. BISOPR/HCTZ [Concomitant]
     Indication: HYPERTENSION
  4. EFFEXOR [Concomitant]
     Indication: DEPRESSION
  5. ALBUTEROL [Concomitant]
     Indication: ASTHMA
  6. VITAMIN B12 [Concomitant]
     Indication: VITAMIN SUPPLEMENTATION
  7. OMEPRAZOLE [Concomitant]
     Indication: GASTROOESOPHAGEAL REFLUX DISEASE
  8. AMBIEN [Concomitant]
     Indication: SLEEP DISORDER
  9. PERCOCET [Concomitant]
     Indication: PAIN

REACTIONS (7)
  - Swelling face [Not Recovered/Not Resolved]
  - Sinusitis [Not Recovered/Not Resolved]
  - Psoriatic arthropathy [Not Recovered/Not Resolved]
  - Arthralgia [Not Recovered/Not Resolved]
  - Wrong technique in drug usage process [Not Recovered/Not Resolved]
  - Injection site pain [Recovered/Resolved]
  - Blood cholesterol increased [Unknown]
